FAERS Safety Report 15992456 (Version 2)
Quarter: 2019Q2

REPORT INFORMATION
  Report Type: Spontaneous
  Country: DE (occurrence: DE)
  Receive Date: 20190221
  Receipt Date: 20190412
  Transmission Date: 20190711
  Serious: Yes (Death)
  Sender: FDA-Public Use
  Company Number: DE-TEVA-2019-DE-1013500

PATIENT
  Age: 62 Year
  Sex: Female
  Weight: 62 kg

DRUGS (6)
  1. CLEXANE [Suspect]
     Active Substance: ENOXAPARIN SODIUM
     Route: 065
  2. DILTIAZEM. [Concomitant]
     Active Substance: DILTIAZEM
  3. PIROXICAM ACIS [Suspect]
     Active Substance: PIROXICAM
     Indication: ARTHRALGIA
     Route: 065
     Dates: start: 2013
  4. VALSARTAN 1A PHARMA [Concomitant]
     Active Substance: VALSARTAN
  5. DILTIAZEM. [Suspect]
     Active Substance: DILTIAZEM
     Route: 065
  6. XARELTO [Suspect]
     Active Substance: RIVAROXABAN
     Indication: THROMBOSIS
     Dosage: 20 MILLIGRAM DAILY; DAILY DOSE: 20 MG MILLGRAM(S) EVERY DAYS
     Route: 065

REACTIONS (3)
  - Pancytopenia [Fatal]
  - Shock haemorrhagic [Fatal]
  - Peritoneal haematoma [Fatal]
